FAERS Safety Report 24720599 (Version 1)
Quarter: 2024Q4

REPORT INFORMATION
  Report Type: Spontaneous
  Country: DE (occurrence: DE)
  Receive Date: 20241211
  Receipt Date: 20241211
  Transmission Date: 20250115
  Serious: Yes (Hospitalization, Other)
  Sender: MERCK
  Company Number: DE-BAYER-2024A165020

PATIENT
  Age: 19 Year
  Sex: Female
  Weight: 66 kg

DRUGS (6)
  1. SOTATERCEPT [Suspect]
     Active Substance: SOTATERCEPT
  2. ADEMPAS [Suspect]
     Active Substance: RIOCIGUAT
     Indication: Pulmonary arterial hypertension
     Dosage: 2.5 MG
  3. AMBRISENTAN [Concomitant]
     Active Substance: AMBRISENTAN
     Dosage: 10 MG
  4. TREPROSTINIL [Concomitant]
     Active Substance: TREPROSTINIL
  5. EPLERENONE [Concomitant]
     Active Substance: EPLERENONE
     Dosage: 50 MG, QD
  6. TORSEMIDE [Concomitant]
     Active Substance: TORSEMIDE
     Dosage: 100 MG, QD

REACTIONS (2)
  - Pericardial effusion [Recovering/Resolving]
  - Right ventricular failure [Unknown]

NARRATIVE: CASE EVENT DATE: 20240301
